FAERS Safety Report 5857943-1 (Version None)
Quarter: 2008Q3

REPORT INFORMATION
  Report Type: 
  Country: None (occurrence: None)
  Receive Date: 20080825
  Receipt Date: 20080825
  Transmission Date: 20090109
  Serious: Yes (Other)
  Sender: FDA-Public Use
  Company Number: None

PATIENT
  Age: 34 Year
  Sex: Female
  Weight: 111.1313 kg

DRUGS (1)
  1. MIRENA [Suspect]
     Indication: CONTRACEPTION
     Dates: start: 20030917, end: 20080121

REACTIONS (6)
  - AMENORRHOEA [None]
  - DEPRESSION [None]
  - MENORRHAGIA [None]
  - MOOD SWINGS [None]
  - OVARIAN CYST [None]
  - THROMBOSIS [None]
